FAERS Safety Report 17274558 (Version 1)
Quarter: 2020Q1

REPORT INFORMATION
  Report Type: Spontaneous
  Country: PL (occurrence: PL)
  Receive Date: 20200115
  Receipt Date: 20200115
  Transmission Date: 20200409
  Serious: Yes (Other)
  Sender: FDA-Public Use
  Company Number: PL-ELI_LILLY_AND_COMPANY-PL202001001557

PATIENT
  Age: 37 Year
  Sex: Male
  Weight: 74.5 kg

DRUGS (2)
  1. CLOPIXOL (DECANOATE) [Concomitant]
     Active Substance: ZUCLOPENTHIXOL DECANOATE
     Indication: PRODUCT USED FOR UNKNOWN INDICATION
     Dosage: 25 MG, EACH EVENING
     Route: 065
  2. ZYPADHERA [Suspect]
     Active Substance: OLANZAPINE PAMOATE
     Indication: SCHIZOPHRENIA
     Dosage: 405 MG, OTHER (EVERY 4 WEEKS)
     Route: 030

REACTIONS (4)
  - Somnolence [Unknown]
  - Asthenia [Unknown]
  - Blood pressure increased [Unknown]
  - Vertigo [Unknown]

NARRATIVE: CASE EVENT DATE: 20200103
